FAERS Safety Report 17042295 (Version 2)
Quarter: 2020Q1

REPORT INFORMATION
  Report Type: Report from Study
  Country: PK (occurrence: PK)
  Receive Date: 20191118
  Receipt Date: 20200107
  Transmission Date: 20200409
  Serious: Yes (Hospitalization, Other)
  Sender: FDA-Public Use
  Company Number: NVSC2019PK038001

PATIENT
  Age: 56 Year
  Sex: Female

DRUGS (1)
  1. COSENTYX [Suspect]
     Active Substance: SECUKINUMAB
     Indication: PSORIATIC ARTHROPATHY
     Dosage: 150 MG, QW
     Route: 058
     Dates: start: 20191108

REACTIONS (5)
  - Motor dysfunction [Unknown]
  - Cerebrovascular accident [Recovered/Resolved]
  - Paresis [Unknown]
  - Paralysis [Unknown]
  - Dizziness [Unknown]

NARRATIVE: CASE EVENT DATE: 20191113
